FAERS Safety Report 5597431-3 (Version None)
Quarter: 2007Q4

REPORT INFORMATION
  Report Type: 
  Country: None (occurrence: None)
  Receive Date: 20071221
  Receipt Date: 20070928
  Transmission Date: 20080405
  Serious: No
  Sender: FDA-Public Use
  Company Number: SPV1-2007-04124

PATIENT
  Age: 6 Year
  Sex: Female
  Weight: 20.9 kg

DRUGS (2)
  1. VYVANSE [Suspect]
     Indication: ATTENTION DEFICIT/HYPERACTIVITY DISORDER
     Dosage: 30 MG, ONE DOSE, ORAL ; 1/2 CAPSULE DAILY, ORAL
     Route: 048
     Dates: start: 20070911, end: 20070922
  2. VYVANSE [Suspect]
     Indication: ATTENTION DEFICIT/HYPERACTIVITY DISORDER
     Dosage: 30 MG, ONE DOSE, ORAL ; 1/2 CAPSULE DAILY, ORAL
     Route: 048
     Dates: start: 20070922

REACTIONS (8)
  - ANGER [None]
  - ANOREXIA [None]
  - CHEST PAIN [None]
  - CRYING [None]
  - DIZZINESS [None]
  - INITIAL INSOMNIA [None]
  - LOGORRHOEA [None]
  - WRONG TECHNIQUE IN DRUG USAGE PROCESS [None]
